FAERS Safety Report 15921589 (Version 1)
Quarter: 2019Q1

REPORT INFORMATION
  Report Type: Spontaneous
  Country: US (occurrence: US)
  Receive Date: 20190115
  Receipt Date: 20190115
  Transmission Date: 20190417
  Serious: No
  Sender: FDA-Public Use
  Company Number: None

PATIENT
  Age: 82 Year
  Sex: Female

DRUGS (1)
  1. ALENDRONATE SODIUM 70MG TAB [Suspect]
     Active Substance: ALENDRONATE SODIUM
     Indication: SENILE OSTEOPOROSIS
     Dosage: TAKE 1 TABLET (70 MG) BY MOUTH E       VERY 7 DAYS ON?EMPTY STOMACH BEF        ORE OTHER MEDS, WITH 80Z OF?
     Route: 048
     Dates: start: 201610

REACTIONS (1)
  - Bronchitis [None]
